FAERS Safety Report 9755822 (Version 1)
Quarter: 2013Q4

REPORT INFORMATION
  Report Type: Spontaneous
  Country: US (occurrence: US)
  Receive Date: 20131213
  Receipt Date: 20131213
  Transmission Date: 20140711
  Serious: No
  Sender: FDA-Public Use
  Company Number: US-GLAXOSMITHKLINE-A1024979A

PATIENT
  Age: 65 Year
  Sex: Male

DRUGS (1)
  1. NICODERM CQ 21MG [Suspect]
     Indication: EX-TOBACCO USER
     Dates: start: 201305

REACTIONS (3)
  - Application site erythema [Not Recovered/Not Resolved]
  - Application site discolouration [Unknown]
  - Application site erythema [Unknown]
